FAERS Safety Report 24291225 (Version 1)
Quarter: 2024Q3

REPORT INFORMATION
  Report Type: Spontaneous
  Country: US (occurrence: None)
  Receive Date: 20240906
  Receipt Date: 20240906
  Transmission Date: 20241017
  Serious: No
  Sender: DOMPE FARMACEUTICI
  Company Number: US-FARMAPROD-202308-2367

PATIENT
  Sex: Female

DRUGS (25)
  1. OXERVATE [Suspect]
     Active Substance: CENEGERMIN-BKBJ
     Indication: Neurotrophic keratopathy
     Route: 047
     Dates: start: 20230802, end: 202309
  2. OXERVATE [Suspect]
     Active Substance: CENEGERMIN-BKBJ
  3. COLLAGEN [Concomitant]
     Active Substance: COLLAGEN
     Dosage: 125-740 MG
  4. VITAMIN E [Concomitant]
     Active Substance: .ALPHA.-TOCOPHEROL
  5. VITAMIN B COMPLEX [Concomitant]
     Active Substance: CYANOCOBALAMIN\DEXPANTHENOL\NIACINAMIDE\PYRIDOXINE HYDROCHLORIDE\RIBOFLAVIN 5^-PHOSPHATE SODIUM\THIA
  6. VITAMIN C [Concomitant]
     Active Substance: ASCORBIC ACID
  7. BIOTIN [Concomitant]
     Active Substance: BIOTIN
  8. VITAMIN D3 [Concomitant]
     Active Substance: CHOLECALCIFEROL
  9. VITAMIN B12 [Concomitant]
     Active Substance: CYANOCOBALAMIN
  10. ZINC [Concomitant]
     Active Substance: ZINC
  11. CALCIUM-MAGNESIUM-ZINC [Concomitant]
  12. MAGNESIUM [Concomitant]
     Active Substance: MAGNESIUM
  13. VITAMINS [Concomitant]
     Active Substance: VITAMINS
     Dosage: GUMMIES
  14. XANAX [Concomitant]
     Active Substance: ALPRAZOLAM
  15. LASIX [Concomitant]
     Active Substance: FUROSEMIDE
  16. METFORMIN HYDROCHLORIDE [Concomitant]
     Active Substance: METFORMIN HYDROCHLORIDE
  17. BUSPIRONE HCL [Concomitant]
     Active Substance: BUSPIRONE HYDROCHLORIDE
  18. CRESTOR [Concomitant]
     Active Substance: ROSUVASTATIN CALCIUM
  19. SPIRONOLACTONE [Concomitant]
     Active Substance: SPIRONOLACTONE
  20. NORVASC [Concomitant]
     Active Substance: AMLODIPINE BESYLATE
  21. ATENOLOL [Concomitant]
     Active Substance: ATENOLOL
  22. CIPROFLOXACIN HYDROCHLORIDE [Concomitant]
     Active Substance: CIPROFLOXACIN HYDROCHLORIDE
  23. DORZOLAMIDE [Concomitant]
     Active Substance: DORZOLAMIDE
  24. PREDNISONE [Concomitant]
     Active Substance: PREDNISONE
     Dosage: DOSE PACK
  25. SERUM TEARS [Concomitant]

REACTIONS (5)
  - Eyelid pain [Not Recovered/Not Resolved]
  - Erythema of eyelid [Not Recovered/Not Resolved]
  - Eye pain [Not Recovered/Not Resolved]
  - Photophobia [Unknown]
  - Vision blurred [Unknown]
